FAERS Safety Report 15460730 (Version 2)
Quarter: 2018Q4

REPORT INFORMATION
  Report Type: Spontaneous
  Country: US (occurrence: US)
  Receive Date: 20181003
  Receipt Date: 20181102
  Transmission Date: 20190204
  Serious: No
  Sender: FDA-Public Use
  Company Number: US-BAYER-2018-183841

PATIENT
  Age: 72 Year
  Sex: Female
  Weight: 63.99 kg

DRUGS (1)
  1. MIRALAX [Suspect]
     Active Substance: POLYETHYLENE GLYCOL 3350
     Indication: GASTROINTESTINAL DISORDER
     Dosage: HALF PACKET DOSE
     Route: 048
     Dates: start: 20180930, end: 20180930

REACTIONS (3)
  - Expired product administered [Unknown]
  - Diarrhoea [Recovered/Resolved]
  - Product prescribing issue [Unknown]
